FAERS Safety Report 9693851 (Version 2)
Quarter: 2014Q1

REPORT INFORMATION
  Report Type: Spontaneous
  Country: SI (occurrence: SI)
  Receive Date: 20131118
  Receipt Date: 20140115
  Transmission Date: 20141002
  Serious: Yes (Hospitalization)
  Sender: FDA-Public Use
  Company Number: SI-ABBVIE-13P-261-1169768-00

PATIENT
  Sex: Male
  Weight: 113 kg

DRUGS (1)
  1. KREON [Suspect]
     Indication: PANCREATIC INSUFFICIENCY
     Dosage: KREON 25000, 3 CAPSULES PER DAY
     Route: 048
     Dates: start: 201212, end: 20131021

REACTIONS (1)
  - Inguinal hernia, obstructive [Recovered/Resolved]
